FAERS Safety Report 8873207 (Version 2)
Quarter: 2014Q2

REPORT INFORMATION
  Report Type: Spontaneous
  Country: US (occurrence: US)
  Receive Date: 20121029
  Receipt Date: 20131018
  Transmission Date: 20141212
  Serious: Yes (Hospitalization)
  Sender: FDA-Public Use
  Company Number: US-PFIZER INC-2012266049

PATIENT
  Age: 58 Year
  Sex: Female
  Weight: 125 kg

DRUGS (4)
  1. GLUCOTROL [Suspect]
     Dosage: UNK
  2. LIPITOR [Suspect]
     Dosage: UNK
  3. ACCUPRIL [Suspect]
     Dosage: UNK
  4. DILANTIN [Suspect]
     Dosage: UNK

REACTIONS (1)
  - Convulsion [Unknown]
